FAERS Safety Report 15694790 (Version 2)
Quarter: 2018Q4

REPORT INFORMATION
  Report Type: Spontaneous
  Country: US (occurrence: US)
  Receive Date: 20181206
  Receipt Date: 20181218
  Transmission Date: 20190205
  Serious: Yes (Death)
  Sender: FDA-Public Use
  Company Number: US-PFIZER INC-2018499543

PATIENT
  Age: 75 Year
  Sex: Female

DRUGS (1)
  1. VECURONIUM BROMIDE. [Suspect]
     Active Substance: VECURONIUM BROMIDE
     Dosage: 10 MG, UNK

REACTIONS (8)
  - Pain [Fatal]
  - Mutism [Fatal]
  - Respiratory failure [Fatal]
  - Paralysis [Fatal]
  - Unresponsive to stimuli [Fatal]
  - Cardiac arrest [Fatal]
  - Brain injury [Fatal]
  - Wrong product administered [Fatal]
